FAERS Safety Report 15325239 (Version 4)
Quarter: 2019Q1

REPORT INFORMATION
  Report Type: Spontaneous
  Country: US (occurrence: US)
  Receive Date: 20180828
  Receipt Date: 20190128
  Transmission Date: 20190417
  Serious: Yes (Hospitalization)
  Sender: FDA-Public Use
  Company Number: US-PFIZER INC-2018342726

PATIENT
  Age: 55 Year
  Sex: Female

DRUGS (2)
  1. BOSULIF [Suspect]
     Active Substance: BOSUTINIB MONOHYDRATE
     Indication: CHRONIC MYELOID LEUKAEMIA
     Dosage: 4 DF, DAILY
  2. BOSULIF [Suspect]
     Active Substance: BOSUTINIB MONOHYDRATE
     Dosage: 100 MG, UNK

REACTIONS (6)
  - Influenza [Unknown]
  - Cardiac disorder [Unknown]
  - Malaise [Unknown]
  - Fatigue [Unknown]
  - Dyspnoea [Unknown]
  - Blood test abnormal [Unknown]
